FAERS Safety Report 9519553 (Version 1)
Quarter: 2013Q3

REPORT INFORMATION
  Report Type: Spontaneous
  Country: US (occurrence: US)
  Receive Date: 20130912
  Receipt Date: 20130912
  Transmission Date: 20140515
  Serious: Yes (Hospitalization)
  Sender: FDA-Public Use
  Company Number: PHHY2013US098002

PATIENT
  Age: 68 Year
  Sex: Female

DRUGS (7)
  1. PREDNISONE [Suspect]
     Dosage: 1 MG/KG, UNK
     Route: 048
  2. CYCLOPHOSPHAMIDE [Suspect]
     Dosage: 2 MG/KG, UNK
  3. CYCLOPHOSPHAMIDE [Suspect]
     Dosage: 1 MG/KG, UNK
  4. FLUID [Concomitant]
     Route: 042
  5. ASPIRIN [Concomitant]
  6. METOPROLOL [Concomitant]
  7. METHYLPREDNISOLONE [Concomitant]
     Dosage: 1000 MG, UNK

REACTIONS (7)
  - Thrombotic thrombocytopenic purpura [Recovered/Resolved]
  - Neutropenia [Recovered/Resolved]
  - Anuria [Recovered/Resolved]
  - Genital herpes [Recovered/Resolved]
  - Thrombocytopenia [Recovered/Resolved]
  - Red blood cell schistocytes present [Recovered/Resolved]
  - Anaemia [Recovered/Resolved]
